FAERS Safety Report 11108650 (Version 2)
Quarter: 2015Q3

REPORT INFORMATION
  Report Type: Report from Study
  Country: PA (occurrence: PA)
  Receive Date: 20150513
  Receipt Date: 20150811
  Transmission Date: 20151125
  Serious: Yes (Hospitalization)
  Sender: FDA-Public Use
  Company Number: PA-ABBVIE-15K-125-1387969-00

PATIENT
  Age: 51 Year
  Sex: Female

DRUGS (2)
  1. HUMIRA [Suspect]
     Active Substance: ADALIMUMAB
     Indication: RHEUMATOID ARTHRITIS
     Route: 058
     Dates: start: 20110722
  2. METHOTREXATE [Concomitant]
     Active Substance: METHOTREXATE
     Indication: PRODUCT USED FOR UNKNOWN INDICATION
     Route: 058

REACTIONS (10)
  - Ulcerative keratitis [Recovered/Resolved]
  - Procedural pain [Not Recovered/Not Resolved]
  - Eye pain [Not Recovered/Not Resolved]
  - Hip arthroplasty [Recovered/Resolved]
  - Headache [Recovered/Resolved]
  - Dry eye [Recovering/Resolving]
  - Abnormal sensation in eye [Recovered/Resolved with Sequelae]
  - Eye infection [Not Recovered/Not Resolved]
  - Ocular hyperaemia [Recovering/Resolving]
  - Corneal infection [Recovering/Resolving]

NARRATIVE: CASE EVENT DATE: 201312
